FAERS Safety Report 12435592 (Version 1)
Quarter: 2016Q2

REPORT INFORMATION
  Report Type: Spontaneous
  Country: US (occurrence: US)
  Receive Date: 20160603
  Receipt Date: 20160603
  Transmission Date: 20160815
  Serious: No
  Sender: FDA-Public Use
  Company Number: US-ROCHE-1674920

PATIENT
  Age: 74 Year
  Sex: Female

DRUGS (10)
  1. LETROZOLE. [Concomitant]
     Active Substance: LETROZOLE
     Route: 065
  2. FLUOXETINE [Concomitant]
     Active Substance: FLUOXETINE HYDROCHLORIDE
     Route: 065
  3. GLIPIZIDE ER [Concomitant]
     Active Substance: GLIPIZIDE
     Route: 065
  4. XELODA [Suspect]
     Active Substance: CAPECITABINE
     Indication: BREAST CANCER
     Route: 065
     Dates: start: 20150819
  5. RANITIDINE HCL [Concomitant]
     Active Substance: RANITIDINE HYDROCHLORIDE
  6. OMEPRAZOLE. [Concomitant]
     Active Substance: OMEPRAZOLE
     Route: 065
  7. LISINOPRIL. [Concomitant]
     Active Substance: LISINOPRIL
  8. METFORMIN HYDROCHLORIDE. [Concomitant]
     Active Substance: METFORMIN HYDROCHLORIDE
     Route: 065
  9. ATENOLOL. [Concomitant]
     Active Substance: ATENOLOL
     Route: 065
  10. HYDRALAZINE [Concomitant]
     Active Substance: HYDRALAZINE HYDROCHLORIDE
     Route: 065

REACTIONS (3)
  - Vomiting [Not Recovered/Not Resolved]
  - Bone pain [Not Recovered/Not Resolved]
  - Nausea [Not Recovered/Not Resolved]

NARRATIVE: CASE EVENT DATE: 20150819
